FAERS Safety Report 21262029 (Version 1)
Quarter: 2022Q3

REPORT INFORMATION
  Report Type: Spontaneous
  Country: CN (occurrence: CN)
  Receive Date: 20220827
  Receipt Date: 20220827
  Transmission Date: 20221026
  Serious: Yes (Hospitalization, Other)
  Sender: FDA-Public Use
  Company Number: None

PATIENT
  Age: 50 Year
  Sex: Female
  Weight: 49 kg

DRUGS (4)
  1. CYCLOPHOSPHAMIDE [Suspect]
     Active Substance: CYCLOPHOSPHAMIDE
     Indication: Breast cancer female
     Dosage: DOSAGE FORM: INJECTION, 700 MG, QD, DILUTED WITH 0.9% SODIUM CHLORIDE 500 ML
     Route: 041
     Dates: start: 20220716, end: 20220716
  2. SODIUM CHLORIDE [Suspect]
     Active Substance: SODIUM CHLORIDE
     Indication: Medication dilution
     Dosage: DOSAGE FORM: INJECTION, 500 ML, QD, DILUTED WITH CYCLOPHOSPHAMIDE 700 MG
     Route: 041
     Dates: start: 20220716, end: 20220716
  3. DEXTROSE MONOHYDRATE [Suspect]
     Active Substance: DEXTROSE MONOHYDRATE
     Indication: Medication dilution
     Dosage: DOSAGE FORM: INJECTION, 250 ML, QD, DILUTED WITH PIRARUBICIN HYDROCHLORIDE 70MG
     Route: 041
     Dates: start: 20220716, end: 20220716
  4. PIRARUBICIN HYDROCHLORIDE [Suspect]
     Active Substance: PIRARUBICIN HYDROCHLORIDE
     Indication: Breast cancer female
     Dosage: 70 MG, QD, DILUTED WITH GLUCOSE 250 ML
     Route: 041
     Dates: start: 20220716, end: 20220716

REACTIONS (1)
  - Granulocytopenia [Recovering/Resolving]

NARRATIVE: CASE EVENT DATE: 20220804
